FAERS Safety Report 7169843-8 (Version None)
Quarter: 2010Q4

REPORT INFORMATION
  Report Type: 
  Country: None (occurrence: None)
  Receive Date: 20101217
  Receipt Date: 20101206
  Transmission Date: 20110411
  Serious: Yes (Other)
  Sender: FDA-Public Use
  Company Number: PHHY2010DE69321

PATIENT
  Sex: Male
  Weight: 62 kg

DRUGS (4)
  1. AFINITOR [Suspect]
     Indication: RENAL CELL CARCINOMA
     Dosage: 10 MG, DAILY
     Route: 048
     Dates: start: 20100708, end: 20100830
  2. PANTOZOL [Concomitant]
     Indication: GASTROINTESTINAL OEDEMA
     Dosage: 40 MG, DAILY
     Route: 048
  3. VOLTAREN [Concomitant]
     Indication: METASTASES TO BONE
     Dosage: UNK
     Route: 048
  4. RAMIPRIL [Concomitant]
     Indication: CARDIAC FAILURE
     Dosage: 5 MG, QD
     Dates: start: 20090101

REACTIONS (7)
  - CARDIAC FAILURE [None]
  - COUGH [None]
  - DEPRESSION [None]
  - DYSPNOEA [None]
  - FATIGUE [None]
  - OEDEMA PERIPHERAL [None]
  - ORTHOPNOEA [None]
